FAERS Safety Report 8022678-6 (Version None)
Quarter: 2012Q1

REPORT INFORMATION
  Report Type: 
  Country: None (occurrence: None)
  Receive Date: 20120104
  Receipt Date: 20120102
  Transmission Date: 20120608
  Serious: Yes (Other)
  Sender: FDA-Public Use
  Company Number: BR-ABBOTT-11P-020-0883536-00

PATIENT
  Sex: Female
  Weight: 69 kg

DRUGS (11)
  1. FAMOTIDINE [Concomitant]
     Indication: PAIN
     Route: 048
  2. OMEPRAZOLE [Concomitant]
     Indication: GASTRIC DISORDER
     Route: 048
  3. FLUOXETINE [Concomitant]
     Indication: AFFECTIVE DISORDER
     Route: 048
  4. PREDNISONE TAB [Concomitant]
     Indication: PAIN
     Route: 048
  5. TIBOLONE [Concomitant]
     Indication: HORMONE REPLACEMENT THERAPY
     Route: 048
  6. HUMIRA [Suspect]
     Indication: RHEUMATOID ARTHRITIS
     Route: 058
     Dates: start: 20101201
  7. CYCLOBENZAPRINE [Concomitant]
     Indication: PAIN
     Route: 048
  8. CORTISONE ACETATE [Concomitant]
     Indication: INFLAMMATION
     Route: 048
  9. TIMOLOL MALEATE [Concomitant]
     Indication: PAIN
     Route: 048
  10. CODEINE [Concomitant]
     Indication: PAIN
     Route: 048
  11. ACETAMINOPHEN [Concomitant]
     Indication: PAIN
     Route: 048

REACTIONS (5)
  - ABASIA [None]
  - ARTHRITIS [None]
  - INTERVERTEBRAL DISC PROTRUSION [None]
  - BEDRIDDEN [None]
  - PAIN [None]
